FAERS Safety Report 9417245 (Version 1)
Quarter: 2013Q3

REPORT INFORMATION
  Report Type: Spontaneous
  Country: US (occurrence: US)
  Receive Date: 20130724
  Receipt Date: 20130724
  Transmission Date: 20140515
  Serious: No
  Sender: FDA-Public Use
  Company Number: US-BAUSCH-BL-2013-002083

PATIENT
  Age: 53 Year
  Sex: Male

DRUGS (2)
  1. OPCON-A [Suspect]
     Indication: EYE PRURITUS
     Dosage: 2 DROPS; ONCE; OPHTHALMIC
     Route: 047
     Dates: start: 20130404, end: 20130404
  2. OPCON-A [Suspect]
     Indication: LACRIMATION INCREASED

REACTIONS (2)
  - Superficial injury of eye [Recovered/Resolved]
  - Ocular hyperaemia [Recovered/Resolved]
